FAERS Safety Report 21447271 (Version 5)
Quarter: 2022Q4

REPORT INFORMATION
  Report Type: Spontaneous
  Country: JP (occurrence: JP)
  Receive Date: 20221012
  Receipt Date: 20221222
  Transmission Date: 20230112
  Serious: Yes (Death, Life-Threatening)
  Sender: FDA-Public Use
  Company Number: JP-ABBVIE-4150963

PATIENT
  Age: 68 Year
  Sex: Female

DRUGS (11)
  1. RINVOQ [Suspect]
     Active Substance: UPADACITINIB
     Indication: Rheumatoid arthritis
     Dosage: FORM STRENGTH: 30 MILLIGRAM
     Route: 048
     Dates: start: 20220302, end: 20220827
  2. LOXOPROFEN SODIUM DIHYDRATE [Concomitant]
     Active Substance: LOXOPROFEN SODIUM DIHYDRATE
     Indication: Pain management
     Dosage: 120 UNKNOWN
     Route: 048
  3. BROMHEXINE HYDROCHLORIDE [Concomitant]
     Active Substance: BROMHEXINE HYDROCHLORIDE
     Indication: Asthma
     Dosage: TIME INTERVAL: 0.33333333 DAYS: 12 MILLIGRAM
     Route: 048
  4. REBAMIPIDE [Concomitant]
     Active Substance: REBAMIPIDE
     Indication: Pain
     Dosage: 200 UNKNOWN
     Route: 065
  5. VONOPRAZAN FUMARATE [Concomitant]
     Active Substance: VONOPRAZAN FUMARATE
     Indication: Gastritis
     Dosage: FORM STRENGTH: 10 UNKNOWN
     Route: 065
  6. RISEDRONATE SODIUM HEMI-PENTAHYDRATE [Concomitant]
     Active Substance: RISEDRONATE SODIUM HEMI-PENTAHYDRATE
     Indication: Osteoporosis
     Dosage: FORM STRENGTH: 17.5 UNKNOWN
     Route: 065
  7. OLOPATADINE HYDROCHLORIDE [Concomitant]
     Active Substance: OLOPATADINE HYDROCHLORIDE
     Indication: Eye allergy
     Dosage: FORM STRENGTH: 0.1
     Route: 047
  8. TIPEPIDINE HIBENZATE [Concomitant]
     Active Substance: TIPEPIDINE HIBENZATE
     Indication: Asthma
     Dosage: TIME INTERVAL: 0.33333333 DAYS: 60 MILLIGRAM
     Route: 048
  9. MONTELUKAST SODIUM [Concomitant]
     Active Substance: MONTELUKAST SODIUM
     Indication: Asthma
     Route: 048
  10. Fluticasone furoate and vilanterol trifenatate [Concomitant]
     Indication: Asthma
     Dosage: FREQUENCY TEXT: AT THE FIT
     Route: 055
  11. ELDECALCITOL [Concomitant]
     Active Substance: ELDECALCITOL
     Indication: Osteoporosis
     Dosage: FORM STRENGTH: 0.75 UNKNOWN
     Route: 065

REACTIONS (7)
  - Lung neoplasm malignant [Fatal]
  - Nephrolithiasis [Unknown]
  - Metastases to bone [Fatal]
  - Metastases to skin [Fatal]
  - Head injury [Unknown]
  - Fall [Unknown]
  - Pyrexia [Unknown]

NARRATIVE: CASE EVENT DATE: 20220826
